FAERS Safety Report 8971301 (Version 3)
Quarter: 2013Q4

REPORT INFORMATION
  Report Type: Spontaneous
  Country: JP (occurrence: JP)
  Receive Date: 20121218
  Receipt Date: 20131210
  Transmission Date: 20140711
  Serious: Yes (Other)
  Sender: FDA-Public Use
  Company Number: JP-ASTRAZENECA-2012SE92432

PATIENT
  Age: 57 Year
  Sex: Male
  Weight: 57 kg

DRUGS (10)
  1. DIPRIVAN KIT [Suspect]
     Indication: MAINTENANCE OF ANAESTHESIA
     Dosage: PROPOFOL
     Dates: start: 200808, end: 200808
  2. DIPRIVAN KIT [Suspect]
     Indication: MAINTENANCE OF ANAESTHESIA
     Route: 042
     Dates: start: 20121205
  3. DIPRIVAN KIT [Suspect]
     Indication: MAINTENANCE OF ANAESTHESIA
     Route: 042
     Dates: end: 20121207
  4. ANTIPYRETICS, ANALGESICS AND ANTI-INFLAMMATORY AGENTS [Concomitant]
     Indication: ANALGESIC THERAPY
     Dosage: DOSE UNKNOWN
     Route: 065
  5. MIDAZOLAM [Concomitant]
     Indication: INDUCTION OF ANAESTHESIA
     Dates: start: 20121205, end: 20121205
  6. FENTANYL [Concomitant]
     Indication: INDUCTION OF ANAESTHESIA
     Route: 042
     Dates: start: 20121205, end: 20121205
  7. ROCURONIUM BROMIDE [Concomitant]
     Indication: INDUCTION OF ANAESTHESIA
     Route: 042
     Dates: start: 20121205, end: 20121205
  8. SEVOFLURANE [Concomitant]
     Indication: MAINTENANCE OF ANAESTHESIA
     Dates: start: 200808, end: 200808
  9. SEVOFLURANE [Concomitant]
     Indication: MAINTENANCE OF ANAESTHESIA
     Dates: start: 20121205, end: 20121205
  10. REMIFENTANIL [Concomitant]

REACTIONS (6)
  - Hyperthermia malignant [Recovering/Resolving]
  - Multi-organ failure [Unknown]
  - Blood creatine phosphokinase increased [Unknown]
  - Acidosis [Unknown]
  - Blood pressure decreased [Unknown]
  - Pyrexia [Recovering/Resolving]
